FAERS Safety Report 5423102-X (Version None)
Quarter: 2007Q3

REPORT INFORMATION
  Report Type: 
  Country: None (occurrence: None)
  Receive Date: 20070821
  Receipt Date: 20070806
  Transmission Date: 20080115
  Serious: Yes (Other)
  Sender: FDA-Public Use
  Company Number: 2007RR-09153

PATIENT
  Age: 48 Year
  Sex: Male

DRUGS (1)
  1. CLARITHROMYCIN 500 MG TABLETS (CLARITHROMYCIN) UNKNOWN [Suspect]

REACTIONS (7)
  - ABDOMINAL PAIN [None]
  - ARTHRALGIA [None]
  - GLOMERULONEPHRITIS [None]
  - HAEMATURIA [None]
  - HENOCH-SCHONLEIN PURPURA [None]
  - OEDEMA PERIPHERAL [None]
  - PROTEINURIA [None]
